FAERS Safety Report 8148638 (Version 2)
Quarter: 2013Q3

REPORT INFORMATION
  Report Type: Spontaneous
  Country: US (occurrence: US)
  Receive Date: 20110922
  Receipt Date: 20130830
  Transmission Date: 20140515
  Serious: Yes (Other)
  Sender: FDA-Public Use
  Company Number: US-ASTRAZENECA-2011SE11451

PATIENT
  Age: 58 Year
  Sex: Female
  Weight: 60.3 kg

DRUGS (4)
  1. SEROQUEL [Suspect]
     Indication: BIPOLAR DISORDER
     Route: 048
  2. WELLBUTRIN [Suspect]
     Route: 065
  3. LEVOXYL [Concomitant]
     Indication: THYROID DISORDER
     Dates: start: 1993
  4. SIMVASTATIN [Concomitant]
     Indication: BLOOD CHOLESTEROL ABNORMAL
     Dates: start: 2008

REACTIONS (4)
  - Convulsion [Unknown]
  - Bipolar disorder [Unknown]
  - Blood cholesterol increased [Unknown]
  - Drug dose omission [Unknown]
